FAERS Safety Report 5322329-5 (Version None)
Quarter: 2007Q2

REPORT INFORMATION
  Report Type: 
  Country: None (occurrence: None)
  Receive Date: 20070511
  Receipt Date: 20070501
  Transmission Date: 20071010
  Serious: Yes (Death, Other)
  Sender: FDA-Public Use
  Company Number: GB-ELI_LILLY_AND_COMPANY-GB200703006351

PATIENT
  Age: 72 Year
  Sex: Male

DRUGS (8)
  1. CYMBALTA [Suspect]
     Indication: DEPRESSION
     Dosage: 60 MG, 2/D
     Route: 048
     Dates: start: 20060101, end: 20070308
  2. ASPIRIN [Concomitant]
     Indication: PROPHYLAXIS
     Dosage: 75 MG, DAILY (1/D)
     Route: 048
  3. BISOPROLOL FUMARATE [Concomitant]
     Indication: LEFT VENTRICULAR FAILURE
     Dosage: 1.25 MG, DAILY (1/D)
     Route: 065
  4. FUROSEMIDE [Concomitant]
     Indication: LEFT VENTRICULAR FAILURE
     Dosage: 20 MG, DAILY (1/D)
     Route: 048
  5. ISOSORBIDE MONONITRATE [Concomitant]
     Indication: ANGINA PECTORIS
     Dosage: 20 MG, 2/D
     Route: 048
  6. OXAZEPAM [Concomitant]
     Indication: ANXIETY
     Dosage: UNK, DAILY (1/D)
     Route: 065
  7. SIMVASTATIN [Concomitant]
     Indication: PROPHYLAXIS
     Dosage: 40 MG, DAILY (1/D)
     Route: 048
  8. SPIRONOLACTONE [Concomitant]
     Indication: LEFT VENTRICULAR FAILURE
     Dosage: 25 MG, DAILY (1/D)
     Route: 048

REACTIONS (5)
  - ATRIAL FIBRILLATION [None]
  - CARDIAC ARREST [None]
  - DYSPNOEA [None]
  - PALPITATIONS [None]
  - PULMONARY EMBOLISM [None]
